FAERS Safety Report 4803772-7 (Version None)
Quarter: 2005Q4

REPORT INFORMATION
  Report Type: 
  Country: None (occurrence: None)
  Receive Date: 20051019
  Receipt Date: 20030407
  Transmission Date: 20060501
  Serious: Yes (Hospitalization, Disabling, Other)
  Sender: FDA-Public Use
  Company Number: US-MERCK-0304USA00752

PATIENT
  Age: 59 Year
  Sex: Male
  Weight: 100 kg

DRUGS (7)
  1. VIOXX [Suspect]
     Indication: OSTEOARTHRITIS
     Route: 048
     Dates: start: 20010416, end: 20010514
  2. VIOXX [Suspect]
     Route: 048
     Dates: start: 20010314, end: 20010514
  3. VIOXX [Suspect]
     Route: 048
     Dates: start: 19990101, end: 20010514
  4. VIOXX [Suspect]
     Indication: ARTHRALGIA
     Route: 048
     Dates: start: 20010416, end: 20010514
  5. VIOXX [Suspect]
     Route: 048
     Dates: start: 20010314, end: 20010514
  6. VIOXX [Suspect]
     Route: 048
     Dates: start: 19990101, end: 20010514
  7. LITHIUM CARBONATE [Concomitant]
     Route: 065
     Dates: start: 19800101

REACTIONS (38)
  - AGGRESSION [None]
  - ANAEMIA POSTOPERATIVE [None]
  - ANXIETY [None]
  - APPENDICITIS [None]
  - ARTHRALGIA [None]
  - BURSITIS [None]
  - CARPAL TUNNEL SYNDROME [None]
  - CELLULITIS [None]
  - CHEST PAIN [None]
  - CONSTIPATION [None]
  - DEPRESSION [None]
  - DIARRHOEA [None]
  - DIZZINESS [None]
  - FATIGUE [None]
  - HEART INJURY [None]
  - HEART RATE IRREGULAR [None]
  - INGUINAL HERNIA [None]
  - JOINT DISLOCATION [None]
  - MICTURITION URGENCY [None]
  - MYOCARDIAL INFARCTION [None]
  - NERVE COMPRESSION [None]
  - NERVE INJURY [None]
  - NOCTURIA [None]
  - ONYCHOMYCOSIS [None]
  - OSTEOARTHRITIS [None]
  - PAIN IN EXTREMITY [None]
  - PARANOIA [None]
  - PENIS CARCINOMA [None]
  - PHARYNGOLARYNGEAL PAIN [None]
  - POLLAKIURIA [None]
  - POST-TRAUMATIC STRESS DISORDER [None]
  - RASH [None]
  - ROTATOR CUFF SYNDROME [None]
  - SACROILIITIS [None]
  - SPUTUM ABNORMAL [None]
  - SQUAMOUS CELL CARCINOMA [None]
  - STOMACH DISCOMFORT [None]
  - SUICIDAL IDEATION [None]
